FAERS Safety Report 20373588 (Version 1)
Quarter: 2022Q1

REPORT INFORMATION
  Report Type: Spontaneous
  Country: US (occurrence: US)
  Receive Date: 20220125
  Receipt Date: 20220125
  Transmission Date: 20220423
  Serious: Yes (Hospitalization)
  Sender: FDA-Public Use
  Company Number: US-ALLERGAN-2106631US

PATIENT
  Age: 80 Year
  Sex: Female

DRUGS (1)
  1. BYSTOLIC [Suspect]
     Active Substance: NEBIVOLOL HYDROCHLORIDE
     Indication: Hypertension
     Dosage: ACTUAL: 1/2 OF PRESCRIBED DOSE OF BYSTOLIC AND MAY/MAY NOT TAKE THE REMAINING PORTION OF PILLS LATER
     Route: 048

REACTIONS (7)
  - Hypertension [Recovered/Resolved]
  - Confusional state [Not Recovered/Not Resolved]
  - Intentional product misuse [Unknown]
  - Poisoning [Unknown]
  - Insomnia [Recovered/Resolved]
  - Dyspnoea [Not Recovered/Not Resolved]
  - Therapeutic product effect incomplete [Unknown]

NARRATIVE: CASE EVENT DATE: 20210203
